FAERS Safety Report 10950536 (Version 1)
Quarter: 2015Q1

REPORT INFORMATION
  Report Type: Spontaneous
  Country: US (occurrence: US)
  Receive Date: 20150324
  Receipt Date: 20150324
  Transmission Date: 20150721
  Serious: No
  Sender: FDA-Public Use
  Company Number: US-MALLINCKRODT-T201403611

PATIENT
  Sex: Female
  Weight: 68.27 kg

DRUGS (2)
  1. LEVOTHYROXINE SODIUM. [Concomitant]
     Active Substance: LEVOTHYROXINE SODIUM
     Indication: THYROID DISORDER
     Dosage: 175 MCG, QD
  2. METHADOSE [Suspect]
     Active Substance: METHADONE HYDROCHLORIDE
     Indication: ANAEMIA
     Dosage: 10 MG, UNK
     Route: 065

REACTIONS (1)
  - Product use issue [Unknown]
